FAERS Safety Report 10501079 (Version 2)
Quarter: 2014Q4

REPORT INFORMATION
  Report Type: Spontaneous
  Country: US (occurrence: US)
  Receive Date: 20141007
  Receipt Date: 20141007
  Transmission Date: 20150528
  Serious: Yes (Hospitalization, Other)
  Sender: FDA-Public Use
  Company Number: US-ALEXION PHARMACEUTICALS INC-A201401593

PATIENT

DRUGS (3)
  1. SOLIRIS [Suspect]
     Active Substance: ECULIZUMAB
     Indication: GLOMERULONEPHRITIS MEMBRANOPROLIFERATIVE
     Dosage: 1200 MG, Q2W
     Route: 042
     Dates: start: 20140423
  2. SOLIRIS [Suspect]
     Active Substance: ECULIZUMAB
     Indication: OFF LABEL USE
  3. ANGIOGRAM DYE [Suspect]
     Active Substance: UNSPECIFIED INGREDIENT
     Indication: ANGIOGRAM
     Dosage: UNK
     Route: 065

REACTIONS (12)
  - Cholecystitis [Recovered/Resolved]
  - Procedural pain [Unknown]
  - Biliary colic [Unknown]
  - Dialysis [None]
  - Abdominal pain [Not Recovered/Not Resolved]
  - Liver function test abnormal [Not Recovered/Not Resolved]
  - Renal impairment [Unknown]
  - Gastrointestinal viral infection [Not Recovered/Not Resolved]
  - Blood alkaline phosphatase increased [Not Recovered/Not Resolved]
  - Vasculitis [Unknown]
  - Off label use [Unknown]
  - Drug dose omission [None]

NARRATIVE: CASE EVENT DATE: 2014
